FAERS Safety Report 7267037-9 (Version None)
Quarter: 2011Q1

REPORT INFORMATION
  Report Type: 
  Country: None (occurrence: None)
  Receive Date: 20110201
  Receipt Date: 20110124
  Transmission Date: 20110831
  Serious: Yes (Other)
  Sender: FDA-Public Use
  Company Number: US-BAYER-2011-009472

PATIENT
  Sex: Female

DRUGS (2)
  1. YAZ [Suspect]
     Dosage: UNK
     Route: 048
     Dates: start: 20040101
  2. YASMIN [Suspect]
     Dosage: UNK
     Route: 048
     Dates: start: 20040101

REACTIONS (5)
  - CHOLECYSTITIS [None]
  - INJURY [None]
  - MYOCARDIAL INFARCTION [None]
  - CHOLELITHIASIS [None]
  - PAIN [None]
